FAERS Safety Report 13331022 (Version 1)
Quarter: 2017Q1

REPORT INFORMATION
  Report Type: Spontaneous
  Country: GB (occurrence: CM)
  Receive Date: 20170313
  Receipt Date: 20170313
  Transmission Date: 20170428
  Serious: Yes (Death)
  Sender: FDA-Public Use
  Company Number: GB-BAYER-2017-039871

PATIENT
  Age: 72 Year
  Sex: Male

DRUGS (1)
  1. PRAZIQUANTEL [Suspect]
     Active Substance: PRAZIQUANTEL
     Indication: SCHISTOSOMIASIS
     Dosage: 40 MG/KG, UNK

REACTIONS (1)
  - Urosepsis [Fatal]
